FAERS Safety Report 20517644 (Version 5)
Quarter: 2022Q2

REPORT INFORMATION
  Report Type: Report from Study
  Country: KR (occurrence: KR)
  Receive Date: 20220225
  Receipt Date: 20220610
  Transmission Date: 20220721
  Serious: Yes (Life-Threatening)
  Sender: FDA-Public Use
  Company Number: KR-KOREA IPSEN Pharma-2021-21787

PATIENT
  Age: 61 Year
  Sex: Female

DRUGS (4)
  1. CABOZANTINIB [Suspect]
     Active Substance: CABOZANTINIB
     Indication: Hepatocellular carcinoma
     Dosage: 40 MG, QD
     Route: 048
     Dates: start: 20210624, end: 20211206
  2. VIREAD TAB [Concomitant]
     Indication: Hepatitis B
     Dosage: 300 MG, QD
     Route: 048
     Dates: start: 20210318
  3. Godex [Concomitant]
     Indication: Prophylaxis
     Dosage: 2 {DF}, BID
     Route: 048
     Dates: start: 20210722
  4. URSODIOL [Concomitant]
     Active Substance: URSODIOL
     Indication: Prophylaxis
     Dosage: 1 {DF}, TID
     Route: 048
     Dates: start: 20210506

REACTIONS (3)
  - Thrombocytopenia [Not Recovered/Not Resolved]
  - Constipation [Recovering/Resolving]
  - Decreased appetite [Recovering/Resolving]

NARRATIVE: CASE EVENT DATE: 20210722
